FAERS Safety Report 6887805-2 (Version None)
Quarter: 2010Q3

REPORT INFORMATION
  Report Type: 
  Country: None (occurrence: None)
  Receive Date: 20100730
  Receipt Date: 20100723
  Transmission Date: 20110219
  Serious: Yes (Death)
  Sender: FDA-Public Use
  Company Number: DE-ROCHE-717487

PATIENT
  Age: 75 Year
  Sex: Female
  Weight: 110 kg

DRUGS (1)
  1. XELODA [Suspect]
     Route: 048

REACTIONS (2)
  - HAEMOLYTIC URAEMIC SYNDROME [None]
  - SEPSIS [None]
